FAERS Safety Report 7359074-0 (Version None)
Quarter: 2011Q1

REPORT INFORMATION
  Report Type: 
  Country: None (occurrence: None)
  Receive Date: 20110317
  Receipt Date: 20110307
  Transmission Date: 20110831
  Serious: No
  Sender: FDA-Public Use
  Company Number: US-BAYER-2011-020932

PATIENT
  Sex: Female

DRUGS (2)
  1. MIRENA [Suspect]
     Dosage: 20 ?G, CONT
     Route: 015
  2. MIRENA [Suspect]
     Indication: CONTRACEPTION
     Dosage: 20 ?G, CONT
     Route: 015
     Dates: start: 20110203, end: 20110304

REACTIONS (1)
  - POST PROCEDURAL COMPLICATION [None]
